FAERS Safety Report 25395256 (Version 2)
Quarter: 2025Q2

REPORT INFORMATION
  Report Type: Spontaneous
  Country: US (occurrence: US)
  Receive Date: 20250604
  Receipt Date: 20250620
  Transmission Date: 20250717
  Serious: Yes (Other)
  Sender: REGENERON
  Company Number: US-REGENERON PHARMACEUTICALS, INC.-2025-073878

PATIENT
  Sex: Male

DRUGS (2)
  1. EYLEA HD [Suspect]
     Active Substance: AFLIBERCEPT
     Indication: Neovascular age-related macular degeneration
     Route: 031
     Dates: end: 20250428
  2. EYLEA HD [Suspect]
     Active Substance: AFLIBERCEPT
     Indication: Choroidal neovascularisation

REACTIONS (4)
  - Blindness transient [Recovering/Resolving]
  - Retinal occlusive vasculitis [Recovered/Resolved]
  - Bacterial endophthalmitis [Unknown]
  - Visual acuity reduced transiently [Recovering/Resolving]

NARRATIVE: CASE EVENT DATE: 20250430
